FAERS Safety Report 5133007-X (Version None)
Quarter: 2006Q4

REPORT INFORMATION
  Report Type: 
  Country: None (occurrence: None)
  Receive Date: 20061018
  Receipt Date: 20061010
  Transmission Date: 20070319
  Serious: Yes (Other)
  Sender: FDA-Public Use
  Company Number: 148503ISR

PATIENT
  Age: 41 Year
  Sex: Female

DRUGS (1)
  1. TRIMETHOPRIM [Suspect]
     Dosage: 400 MG (200 MG, 2 IN 1 D) ORAL
     Route: 048

REACTIONS (8)
  - ARTHRALGIA [None]
  - CHILLS [None]
  - HEADACHE [None]
  - IRIDOCYCLITIS [None]
  - MYALGIA [None]
  - NO REACTION ON PREVIOUS EXPOSURE TO DRUG [None]
  - PRURITUS [None]
  - VISUAL DISTURBANCE [None]
